FAERS Safety Report 6962727-7 (Version None)
Quarter: 2010Q3

REPORT INFORMATION
  Report Type: 
  Country: None (occurrence: None)
  Receive Date: 20100831
  Receipt Date: 20100817
  Transmission Date: 20110219
  Serious: Yes (Hospitalization)
  Sender: FDA-Public Use
  Company Number: WAES 1007USA03255

PATIENT
  Age: 61 Year
  Sex: Male
  Weight: 108.8633 kg

DRUGS (40)
  1. CAP VORINOSTAT UNK [Suspect]
     Indication: CHRONIC LYMPHOCYTIC LEUKAEMIA
     Dosage: 400 MG/DAILY/PO
     Route: 048
     Dates: start: 20100524, end: 20100606
  2. CAP VORINOSTAT UNK [Suspect]
     Indication: NON-HODGKIN'S LYMPHOMA RECURRENT
     Dosage: 400 MG/DAILY/PO
     Route: 048
     Dates: start: 20100524, end: 20100606
  3. CAP VORINOSTAT UNK [Suspect]
     Indication: CHRONIC LYMPHOCYTIC LEUKAEMIA
     Dosage: 400 MG/DAILY/PO
     Route: 048
     Dates: start: 20100621, end: 20100704
  4. CAP VORINOSTAT UNK [Suspect]
     Indication: NON-HODGKIN'S LYMPHOMA RECURRENT
     Dosage: 400 MG/DAILY/PO
     Route: 048
     Dates: start: 20100621, end: 20100704
  5. CAP VORINOSTAT UNK [Suspect]
     Indication: CHRONIC LYMPHOCYTIC LEUKAEMIA
     Dosage: 400 MG/DAILY/PO
     Route: 048
     Dates: start: 20100719, end: 20100723
  6. CAP VORINOSTAT UNK [Suspect]
     Indication: NON-HODGKIN'S LYMPHOMA RECURRENT
     Dosage: 400 MG/DAILY/PO
     Route: 048
     Dates: start: 20100719, end: 20100723
  7. RITUXAN [Suspect]
     Indication: CHRONIC LYMPHOCYTIC LEUKAEMIA
     Dosage: 870 MG/IV, 900 MG/IV
     Route: 042
     Dates: start: 20100526, end: 20100526
  8. RITUXAN [Suspect]
     Indication: NON-HODGKIN'S LYMPHOMA RECURRENT
     Dosage: 870 MG/IV, 900 MG/IV
     Route: 042
     Dates: start: 20100526, end: 20100526
  9. RITUXAN [Suspect]
     Indication: CHRONIC LYMPHOCYTIC LEUKAEMIA
     Dosage: 870 MG/IV, 900 MG/IV
     Route: 042
     Dates: start: 20100602, end: 20100616
  10. RITUXAN [Suspect]
     Indication: NON-HODGKIN'S LYMPHOMA RECURRENT
     Dosage: 870 MG/IV, 900 MG/IV
     Route: 042
     Dates: start: 20100602, end: 20100616
  11. RITUXAN [Suspect]
     Indication: CHRONIC LYMPHOCYTIC LEUKAEMIA
     Dosage: 870 MG/IV, 900 MG/IV
     Route: 042
     Dates: start: 20100623, end: 20100623
  12. RITUXAN [Suspect]
     Indication: NON-HODGKIN'S LYMPHOMA RECURRENT
     Dosage: 870 MG/IV, 900 MG/IV
     Route: 042
     Dates: start: 20100623, end: 20100623
  13. RITUXAN [Suspect]
     Indication: CHRONIC LYMPHOCYTIC LEUKAEMIA
     Dosage: 870 MG/IV, 900 MG/IV
     Route: 042
     Dates: start: 20100721, end: 20100721
  14. RITUXAN [Suspect]
     Indication: NON-HODGKIN'S LYMPHOMA RECURRENT
     Dosage: 870 MG/IV, 900 MG/IV
     Route: 042
     Dates: start: 20100721, end: 20100721
  15. LEUSTATIN [Suspect]
     Indication: CHRONIC LYMPHOCYTIC LEUKAEMIA
     Dosage: 11.6 MG/DAILY/IV
     Dates: start: 20100524, end: 20100528
  16. LEUSTATIN [Suspect]
     Indication: NON-HODGKIN'S LYMPHOMA RECURRENT
     Dosage: 11.6 MG/DAILY/IV
     Dates: start: 20100524, end: 20100528
  17. LEUSTATIN [Suspect]
     Indication: CHRONIC LYMPHOCYTIC LEUKAEMIA
     Dosage: 11.6 MG/DAILY/IV
     Dates: start: 20100621, end: 20100625
  18. LEUSTATIN [Suspect]
     Indication: NON-HODGKIN'S LYMPHOMA RECURRENT
     Dosage: 11.6 MG/DAILY/IV
     Dates: start: 20100621, end: 20100625
  19. LEUSTATIN [Suspect]
     Indication: CHRONIC LYMPHOCYTIC LEUKAEMIA
     Dosage: 11.6 MG/DAILY/IV
     Dates: start: 20100719, end: 20100721
  20. LEUSTATIN [Suspect]
     Indication: NON-HODGKIN'S LYMPHOMA RECURRENT
     Dosage: 11.6 MG/DAILY/IV
     Dates: start: 20100719, end: 20100721
  21. BACTRIM [Concomitant]
  22. BENADRYL [Concomitant]
  23. COREG [Concomitant]
  24. CRESTOR [Concomitant]
  25. DECADRON [Concomitant]
  26. IMDUR [Concomitant]
  27. LASIX [Concomitant]
  28. LIPITOR [Concomitant]
  29. MIRALAX [Concomitant]
  30. ACETAMINOPHEN [Concomitant]
  31. ZOFRAN [Concomitant]
  32. ACYCLOVIR [Concomitant]
  33. ASPIRIN [Concomitant]
  34. GLIPIZIDE [Concomitant]
  35. LISINOPRIL [Concomitant]
  36. OMEGA-1 MARINE TRIGLYCERIDES [Concomitant]
  37. OXYCODONE HCL [Concomitant]
  38. PREDNISONE [Concomitant]
  39. SPIRONOLACTONE [Concomitant]
  40. VITAMINS [Concomitant]

REACTIONS (8)
  - BLOOD GLUCOSE INCREASED [None]
  - CHEST PAIN [None]
  - DRUG INTERACTION [None]
  - MITRAL VALVE INCOMPETENCE [None]
  - PARAESTHESIA [None]
  - PARAESTHESIA ORAL [None]
  - SUPRAVENTRICULAR TACHYCARDIA [None]
  - TROPONIN INCREASED [None]
